FAERS Safety Report 7845172-1 (Version None)
Quarter: 2011Q4

REPORT INFORMATION
  Report Type: 
  Country: None (occurrence: None)
  Receive Date: 20111025
  Receipt Date: 20111024
  Transmission Date: 20120403
  Serious: Yes (Death, Life-Threatening, Other)
  Sender: FDA-Public Use
  Company Number: CHPA2011DE12800

PATIENT
  Sex: Male

DRUGS (5)
  1. SCOPOLAMINE [Suspect]
     Indication: SALIVARY HYPERSECRETION
     Dosage: 0.25 DF, Q72H
     Route: 062
     Dates: start: 20110315
  2. METOPROLOL SUCCINATE [Concomitant]
     Indication: EXTRASYSTOLES
     Dosage: 47.5 MG, 1/2 TABLET
     Route: 048
     Dates: start: 20110301
  3. SCOPOLAMINE [Suspect]
     Dosage: 0.5 DF, Q72H
     Route: 062
     Dates: start: 20110314, end: 20110314
  4. LEVOTHYROXINE SODIUM [Concomitant]
     Dosage: 100 1 X 1 TABLET
     Route: 048
     Dates: start: 20100701
  5. NON-DRUG: BANDAGES [Concomitant]
     Dosage: UNK, UNK
     Route: 003

REACTIONS (21)
  - HYPOPNOEA [None]
  - PALLOR [None]
  - RESPIRATORY MUSCLE WEAKNESS [None]
  - GENERAL PHYSICAL HEALTH DETERIORATION [None]
  - FATIGUE [None]
  - ANXIETY [None]
  - SUDDEN ONSET OF SLEEP [None]
  - MOTOR DYSFUNCTION [None]
  - DEATH [None]
  - DEPRESSED LEVEL OF CONSCIOUSNESS [None]
  - EXTRASYSTOLES [None]
  - COGNITIVE DISORDER [None]
  - OFF LABEL USE [None]
  - QUALITY OF LIFE DECREASED [None]
  - POOR QUALITY SLEEP [None]
  - MOBILITY DECREASED [None]
  - WRONG TECHNIQUE IN DRUG USAGE PROCESS [None]
  - OXYGEN SATURATION DECREASED [None]
  - PARESIS [None]
  - OEDEMA PERIPHERAL [None]
  - SOMNOLENCE [None]
